FAERS Safety Report 5199986-X (Version None)
Quarter: 2007Q1

REPORT INFORMATION
  Report Type: 
  Country: None (occurrence: None)
  Receive Date: 20070105
  Receipt Date: 20070102
  Transmission Date: 20070707
  Serious: Yes (Hospitalization)
  Sender: FDA-Public Use
  Company Number: 2007CG00015

PATIENT
  Age: 67 Year
  Sex: Female

DRUGS (3)
  1. XYLOCAINE [Suspect]
     Route: 050
     Dates: start: 20060905, end: 20060905
  2. HYDROCORTANCYL [Suspect]
     Route: 050
     Dates: start: 20060905, end: 20060905
  3. IOPAMIRON [Suspect]
     Route: 050
     Dates: start: 20060905, end: 20060905

REACTIONS (3)
  - CHEST DISCOMFORT [None]
  - COUGH [None]
  - ERYTHEMA [None]
